FAERS Safety Report 7152035-6 (Version None)
Quarter: 2010Q4

REPORT INFORMATION
  Report Type: 
  Country: None (occurrence: None)
  Receive Date: 20101212
  Receipt Date: 20101201
  Transmission Date: 20110411
  Serious: Yes (Hospitalization, Disabling)
  Sender: FDA-Public Use
  Company Number: JP-ASTRAZENECA-2009SE29572

PATIENT
  Age: 57 Year
  Sex: Male
  Weight: 83 kg

DRUGS (6)
  1. BLOPRESS [Suspect]
     Indication: HYPERTENSION
     Route: 048
     Dates: start: 20070206
  2. BLOPRESS [Suspect]
     Route: 048
  3. CALCIUM CHANNEL BLOCKERS [Concomitant]
     Indication: HYPERTENSION
     Route: 065
  4. ORAL ANTIDIABETICS [Concomitant]
     Indication: DIABETES MELLITUS
     Route: 048
  5. SULFONAMIDES, UREA DERIVATIVES [Concomitant]
     Indication: DIABETES MELLITUS
     Route: 048
  6. INSULINS AND ANALOGUES [Concomitant]
     Indication: DIABETES MELLITUS
     Route: 042

REACTIONS (10)
  - ATRIAL FIBRILLATION [None]
  - BLOOD CREATININE INCREASED [None]
  - BLOOD GLUCOSE INCREASED [None]
  - BLOOD POTASSIUM INCREASED [None]
  - BLOOD UREA INCREASED [None]
  - CELLULITIS [None]
  - CEREBRAL INFARCTION [None]
  - DIALYSIS [None]
  - GLYCOSYLATED HAEMOGLOBIN INCREASED [None]
  - OEDEMA [None]
